FAERS Safety Report 23450531 (Version 1)
Quarter: 2024Q1

REPORT INFORMATION
  Report Type: Spontaneous
  Country: IT (occurrence: IT)
  Receive Date: 20240129
  Receipt Date: 20240129
  Transmission Date: 20240410
  Serious: Yes (Death, Other)
  Sender: FDA-Public Use
  Company Number: None

PATIENT
  Age: 70 Year
  Sex: Male
  Weight: 80 kg

DRUGS (2)
  1. OPDIVO [Suspect]
     Active Substance: NIVOLUMAB
     Indication: Malignant melanoma stage IV
     Dosage: 80 MG AND FREQUENCY 4 AND FREQUENCY TIME AS 3 WEEKS
     Route: 042
     Dates: start: 20230803, end: 20231128
  2. YERVOY [Suspect]
     Active Substance: IPILIMUMAB
     Indication: Malignant melanoma stage IV
     Dosage: IPILIMUMAB 3 MGIKG EVERY 3 WEEKS (DT 240 MG PER ADMINISTRATION) X 4 CYCLES
     Route: 042
     Dates: start: 20230803, end: 20231128

REACTIONS (1)
  - Sudden cardiac death [Fatal]

NARRATIVE: CASE EVENT DATE: 20240116
